FAERS Safety Report 12228695 (Version 5)
Quarter: 2020Q3

REPORT INFORMATION
  Report Type: Spontaneous
  Country: US (occurrence: US)
  Receive Date: 20160401
  Receipt Date: 20200731
  Transmission Date: 20201102
  Serious: Yes (Hospitalization)
  Sender: FDA-Public Use
  Company Number: US-JNJFOC-20160301440

PATIENT
  Age: 70 Year
  Sex: Female

DRUGS (2)
  1. WARFARIN                           /00014802/ [Suspect]
     Active Substance: WARFARIN
     Route: 048
     Dates: end: 201510
  2. XARELTO [Suspect]
     Active Substance: RIVAROXABAN
     Indication: THROMBOSIS
     Route: 048
     Dates: start: 201510, end: 201510

REACTIONS (6)
  - Haemoptysis [Recovering/Resolving]
  - Haemorrhage [Unknown]
  - Haematuria [Unknown]
  - Epistaxis [Recovering/Resolving]
  - Gastrointestinal haemorrhage [Unknown]
  - Gingival bleeding [Recovering/Resolving]

NARRATIVE: CASE EVENT DATE: 20151001
